FAERS Safety Report 19101041 (Version 2)
Quarter: 2021Q2

REPORT INFORMATION
  Report Type: Spontaneous
  Country: DE (occurrence: DE)
  Receive Date: 20210407
  Receipt Date: 20210416
  Transmission Date: 20210717
  Serious: Yes (Life-Threatening, Hospitalization, Other)
  Sender: FDA-Public Use
  Company Number: NVSC2021DE077263

PATIENT
  Age: 66 Year
  Sex: Female

DRUGS (2)
  1. INFLUVAC [Suspect]
     Active Substance: INFLUENZA VIRUS VACCINE TRIVALENT TYPE A+B
     Indication: INFLUENZA IMMUNISATION
     Dosage: UNK
     Route: 065
     Dates: start: 20201111, end: 20201111
  2. ACICLOVIR [Suspect]
     Active Substance: ACYCLOVIR
     Indication: PRODUCT USED FOR UNKNOWN INDICATION
     Dosage: UNK (UNK)
     Route: 065
     Dates: end: 20201123

REACTIONS (4)
  - Hashimoto^s encephalopathy [Unknown]
  - Hypokalaemia [Unknown]
  - Acute kidney injury [Unknown]
  - Product physical issue [Unknown]

NARRATIVE: CASE EVENT DATE: 20201119
